FAERS Safety Report 6943374-X (Version None)
Quarter: 2010Q3

REPORT INFORMATION
  Report Type: 
  Country: None (occurrence: None)
  Receive Date: 20100826
  Receipt Date: 20100820
  Transmission Date: 20110219
  Serious: Yes (Other)
  Sender: FDA-Public Use
  Company Number: US-CEPHALON-2010004447

PATIENT
  Age: 55 Year
  Sex: Female

DRUGS (1)
  1. FENTANYL CITRATE [Suspect]
     Route: 002
     Dates: start: 20100301

REACTIONS (4)
  - BRADYCARDIA [None]
  - CONFUSIONAL STATE [None]
  - HYPOTENSION [None]
  - SOMNOLENCE [None]
